FAERS Safety Report 12207033 (Version 1)
Quarter: 2016Q1

REPORT INFORMATION
  Report Type: Spontaneous
  Country: US (occurrence: None)
  Receive Date: 20160323
  Receipt Date: 20160323
  Transmission Date: 20160526
  Serious: Yes (Hospitalization)
  Sender: FDA-Public Use
  Company Number: None

PATIENT
  Age: 69 Year
  Sex: Male
  Weight: 102 kg

DRUGS (7)
  1. AMIODARONE (PACERONE) [Concomitant]
  2. ASPIRIN EC [Concomitant]
     Active Substance: ASPIRIN
  3. POLYETHYLENE GLYCOL (GLYCOLAX/MIRALAX) [Concomitant]
  4. COUMADIN [Concomitant]
     Active Substance: WARFARIN SODIUM
  5. VANCOMYCIN 25 MG/ML [Suspect]
     Active Substance: VANCOMYCIN
     Indication: CLOSTRIDIUM DIFFICILE INFECTION
     Route: 048
     Dates: start: 20160318, end: 20160319
  6. LISINOPRIL (PRINIVIL, ZESTRIL) [Concomitant]
  7. NITROGLYCERIN (NITROSTAT) [Concomitant]

REACTIONS (1)
  - Pancytopenia [None]

NARRATIVE: CASE EVENT DATE: 20160319
